FAERS Safety Report 9159890 (Version 4)
Quarter: 2014Q1

REPORT INFORMATION
  Report Type: Spontaneous
  Country: GB (occurrence: GB)
  Receive Date: 20130313
  Receipt Date: 20140124
  Transmission Date: 20141002
  Serious: Yes (Hospitalization)
  Sender: FDA-Public Use
  Company Number: GB-PFIZER INC-2013080448

PATIENT
  Age: 66 Year
  Sex: Female

DRUGS (11)
  1. LIPOSOMAL FORMULATION OF DOXORUBICIN [Suspect]
     Indication: PLASMA CELL MYELOMA
     Dosage: LIPOSOME INJECTION, 16 MG A DAY, (DAY 1-4)
     Route: 042
     Dates: start: 20130114
  2. VELCADE [Suspect]
     Indication: PLASMA CELL MYELOMA
     Dosage: 1.3 MG/M2, TWICE WEEKLY
     Route: 042
     Dates: start: 20130114
  3. DEXAMETHASONE [Suspect]
     Indication: PLASMA CELL MYELOMA
     Dosage: 20 MG A DAY (DAY 1- 4)
     Route: 048
     Dates: start: 20130114
  4. ADCAL [Concomitant]
     Dosage: UNK
     Route: 065
     Dates: start: 20130204, end: 20130204
  5. ALLOPURINOL [Concomitant]
     Dosage: UNK
     Route: 065
  6. OMEPRAZOLE [Concomitant]
     Dosage: UNK
     Route: 065
  7. SANDO K [Concomitant]
     Dosage: UNK
     Route: 065
     Dates: start: 20130204
  8. ENOXAPARIN [Concomitant]
     Dosage: UNK
     Route: 058
  9. ONDANSETRON [Concomitant]
     Dosage: 16 MG, 2X/DAY
     Route: 048
     Dates: start: 20130202
  10. PHOSPHATE-SANDOZ [Concomitant]
     Dosage: UNK
     Route: 065
     Dates: start: 20130204
  11. PHOSPHATE-SANDOZ [Concomitant]
     Dosage: UNK
     Route: 065
     Dates: start: 20130203, end: 20130207

REACTIONS (2)
  - Lower respiratory tract infection [Recovered/Resolved]
  - Pyrexia [Recovered/Resolved]
